FAERS Safety Report 5669603-0 (Version None)
Quarter: 2008Q1

REPORT INFORMATION
  Report Type: 
  Country: None (occurrence: None)
  Receive Date: 20080312
  Receipt Date: 20080312
  Transmission Date: 20080703
  Serious: Yes (Hospitalization)
  Sender: FDA-Public Use
  Company Number: None

PATIENT
  Sex: Male
  Weight: 116.1208 kg

DRUGS (3)
  1. ORENCIA [Suspect]
     Dosage: 1000MG Q4WKS IV
     Route: 042
     Dates: start: 20080129, end: 20080226
  2. ORENCIA [Suspect]
  3. ORENCIA [Suspect]

REACTIONS (1)
  - ACUTE MYOCARDIAL INFARCTION [None]
